FAERS Safety Report 6051758-X (Version None)
Quarter: 2009Q1

REPORT INFORMATION
  Report Type: 
  Country: None (occurrence: None)
  Receive Date: 20090121
  Receipt Date: 20090121
  Transmission Date: 20090719
  Serious: Yes (Disabling)
  Sender: FDA-Public Use
  Company Number: None

PATIENT
  Age: 7 Year
  Sex: Female
  Weight: 23.587 kg

DRUGS (1)
  1. TOBRADEX [Suspect]
     Indication: BLEPHARITIS
     Dosage: APPLY TO LID MARGINS 2X DAILY OPHTHALMIC
     Route: 047

REACTIONS (2)
  - DRUG HYPERSENSITIVITY [None]
  - KERATITIS [None]
